FAERS Safety Report 17150719 (Version 5)
Quarter: 2025Q3

REPORT INFORMATION
  Report Type: Spontaneous
  Country: EU (occurrence: EU)
  Receive Date: 20191213
  Receipt Date: 20250707
  Transmission Date: 20251021
  Serious: Yes (Death, Life-Threatening, Hospitalization, Other)
  Sender: AUROBINDO
  Company Number: EU-ASTELLAS-2019US045492

PATIENT
  Age: 66 Year
  Sex: Male

DRUGS (6)
  1. LINEZOLID [Suspect]
     Active Substance: LINEZOLID
     Indication: Bacterial infection
     Route: 065
  2. TACROLIMUS [Suspect]
     Active Substance: TACROLIMUS
     Indication: Renal transplant
     Route: 065
  3. PREDNISOLONE [Suspect]
     Active Substance: PREDNISOLONE
     Indication: Renal transplant
     Route: 065
  4. ALBENDAZOLE [Suspect]
     Active Substance: ALBENDAZOLE
     Indication: Bacterial infection
     Route: 065
  5. GANCICLOVIR [Concomitant]
     Active Substance: GANCICLOVIR
     Indication: Product used for unknown indication
     Route: 065
  6. IVERMECTIN [Concomitant]
     Active Substance: IVERMECTIN
     Indication: Product used for unknown indication
     Route: 065

REACTIONS (11)
  - Pneumonia [Fatal]
  - Respiratory failure [Fatal]
  - Encephalitis bacterial [Fatal]
  - Disseminated strongyloidiasis [Fatal]
  - Enterococcal infection [Fatal]
  - Strongyloidiasis [Fatal]
  - Cytomegalovirus infection [Fatal]
  - Superinfection bacterial [Fatal]
  - Coma [Fatal]
  - Encephalitis [Fatal]
  - Drug ineffective [Fatal]
